FAERS Safety Report 9128063 (Version 1)
Quarter: 2013Q1

REPORT INFORMATION
  Report Type: Spontaneous
  Country: FR (occurrence: FR)
  Receive Date: 20130228
  Receipt Date: 20130228
  Transmission Date: 20140127
  Serious: Yes (Hospitalization)
  Sender: FDA-Public Use
  Company Number: FR-B.I. PHARMACEUTICALS,INC./RIDGEFIELD-2013-FF-00573FF

PATIENT
  Age: 85 Year
  Sex: Male

DRUGS (5)
  1. PRADAXA [Suspect]
     Indication: CARDIAC FLUTTER
     Dosage: 220 MG
     Route: 048
     Dates: start: 201208, end: 20121120
  2. COVERSYL [Concomitant]
     Indication: HYPERTENSION
     Dosage: 5 MG
     Route: 048
  3. TAHOR [Concomitant]
     Indication: DYSLIPIDAEMIA
     Dosage: 10 MG
     Route: 048
  4. LANTUS [Concomitant]
     Indication: INSULIN-REQUIRING TYPE 2 DIABETES MELLITUS
     Dosage: 22 U
  5. CORDARONE [Concomitant]
     Indication: CARDIAC FLUTTER
     Dosage: 5 DAYS OUT OF 7
     Route: 048

REACTIONS (3)
  - Epistaxis [Recovered/Resolved]
  - Fall [Recovered/Resolved]
  - Anaemia [Recovered/Resolved]
